FAERS Safety Report 19885267 (Version 1)
Quarter: 2021Q3

REPORT INFORMATION
  Report Type: Spontaneous
  Country: US (occurrence: US)
  Receive Date: 20210927
  Receipt Date: 20210927
  Transmission Date: 20211014
  Serious: No
  Sender: FDA-Public Use
  Company Number: None

PATIENT
  Age: 28 Year
  Sex: Male

DRUGS (1)
  1. CBD COOKIES [Suspect]
     Active Substance: CANNABIDIOL\HERBALS

REACTIONS (1)
  - Overdose [None]

NARRATIVE: CASE EVENT DATE: 20210919
